FAERS Safety Report 12262652 (Version 1)
Quarter: 2016Q2

REPORT INFORMATION
  Report Type: Spontaneous
  Country: US (occurrence: US)
  Receive Date: 20160413
  Receipt Date: 20160413
  Transmission Date: 20160815
  Serious: No
  Sender: FDA-Public Use
  Company Number: US-ASTRAZENECA-2016SE19944

PATIENT
  Age: 44 Year
  Sex: Male

DRUGS (3)
  1. SEROQUEL [Suspect]
     Active Substance: QUETIAPINE FUMARATE
     Indication: BIPOLAR I DISORDER
     Dosage: UNKNOWN DOSE
     Route: 048
     Dates: start: 2015, end: 2015
  2. RISPERDAL [Suspect]
     Active Substance: RISPERIDONE
     Indication: BIPOLAR I DISORDER
     Dosage: UNKNOWN DOSE
     Route: 065
     Dates: start: 201509, end: 2015
  3. ABILIFY [Suspect]
     Active Substance: ARIPIPRAZOLE
     Indication: BIPOLAR I DISORDER
     Dosage: UNKNOWN DOSE, DAILY (OTSUKA PHARMACEUTICALS)
     Route: 048
     Dates: start: 201504, end: 201509

REACTIONS (7)
  - Alcohol abuse [Not Recovered/Not Resolved]
  - Drug ineffective [Not Recovered/Not Resolved]
  - Somnolence [Not Recovered/Not Resolved]
  - Mania [Not Recovered/Not Resolved]
  - Adverse event [Not Recovered/Not Resolved]
  - Intentional product misuse [Unknown]
  - Depression [Not Recovered/Not Resolved]

NARRATIVE: CASE EVENT DATE: 201509
